FAERS Safety Report 4886171-1 (Version None)
Quarter: 2006Q1

REPORT INFORMATION
  Report Type: 
  Country: None (occurrence: None)
  Receive Date: 20060120
  Receipt Date: 20060111
  Transmission Date: 20060701
  Serious: Yes (Other)
  Sender: FDA-Public Use
  Company Number: IE-GLAXOSMITHKLINE-B0406257A

PATIENT
  Age: 61 Year
  Sex: Male

DRUGS (9)
  1. AUGMENTIN '125' [Suspect]
     Indication: DRUG USE FOR UNKNOWN INDICATION
     Dosage: 1.2MG PER DAY
     Route: 042
     Dates: start: 20060109
  2. SALBUTAMOL [Concomitant]
     Route: 055
  3. ATROVENT [Concomitant]
  4. BETALOC [Concomitant]
  5. IMDUR [Concomitant]
  6. LIPITOR [Concomitant]
  7. NU-SEALS ASPIRIN [Concomitant]
  8. TRITACE [Concomitant]
  9. GLYCERYL TRINITRATE [Concomitant]

REACTIONS (2)
  - ANAPHYLACTOID REACTION [None]
  - CARDIAC ARREST [None]
